FAERS Safety Report 6014982-8 (Version None)
Quarter: 2008Q4

REPORT INFORMATION
  Report Type: 
  Country: None (occurrence: None)
  Receive Date: 20081219
  Receipt Date: 20081208
  Transmission Date: 20090506
  Serious: Yes (Other)
  Sender: FDA-Public Use
  Company Number: US-GENENTECH-233334

PATIENT
  Sex: Female

DRUGS (7)
  1. RANIBIZUMAB [Suspect]
     Indication: MACULAR DEGENERATION
     Dosage: 0.5 MG, 1/MONTH
     Route: 031
     Dates: start: 20081102
  2. VICODIN [Concomitant]
     Indication: DRUG USE FOR UNKNOWN INDICATION
  3. LORAZEPAM [Concomitant]
     Indication: DRUG USE FOR UNKNOWN INDICATION
  4. ELAVIL [Concomitant]
     Indication: DRUG USE FOR UNKNOWN INDICATION
  5. LASIX [Concomitant]
     Indication: DRUG USE FOR UNKNOWN INDICATION
  6. DILTIAZEM [Concomitant]
     Indication: DRUG USE FOR UNKNOWN INDICATION
  7. THEOPHYLLINE [Concomitant]
     Indication: DRUG USE FOR UNKNOWN INDICATION

REACTIONS (1)
  - UVEITIS [None]
